FAERS Safety Report 6737776-4 (Version None)
Quarter: 2010Q2

REPORT INFORMATION
  Report Type: 
  Country: None (occurrence: None)
  Receive Date: 20100521
  Receipt Date: 20100521
  Transmission Date: 20101027
  Serious: Yes (Hospitalization)
  Sender: FDA-Public Use
  Company Number: None

PATIENT
  Age: 73 Year
  Sex: Female
  Weight: 43.9 kg

DRUGS (4)
  1. CAPECITABINE [Suspect]
     Indication: PANCREATIC CARCINOMA
     Dosage: 1000 MG BID PO
     Route: 048
     Dates: start: 20100218
  2. CAPECITABINE [Suspect]
     Indication: PANCREATIC CARCINOMA
     Dosage: 1000 MG BID PO
     Route: 048
     Dates: start: 20100404
  3. VORINOSTAT [Suspect]
     Dosage: 100 MG DAYS RADIATION PO
     Route: 048
     Dates: start: 20100204
  4. VORINOSTAT [Suspect]
     Dosage: 100 MG DAYS RADIATION PO
     Route: 048
     Dates: start: 20100225

REACTIONS (5)
  - COLITIS [None]
  - HEPATIC LESION [None]
  - NAUSEA [None]
  - RADIATION INJURY [None]
  - VOMITING [None]
